FAERS Safety Report 10792461 (Version 1)
Quarter: 2015Q1

REPORT INFORMATION
  Report Type: Spontaneous
  Country: US (occurrence: US)
  Receive Date: 20150213
  Receipt Date: 20150213
  Transmission Date: 20150721
  Serious: Yes (Hospitalization)
  Sender: FDA-Public Use
  Company Number: US-SA-2015SA015930

PATIENT
  Age: 56 Year
  Sex: Male

DRUGS (16)
  1. VALGANCICLOVIR [Concomitant]
     Active Substance: VALGANCICLOVIR
     Indication: ANTIVIRAL PROPHYLAXIS
     Route: 048
     Dates: start: 20070309
  2. VALGANCICLOVIR [Concomitant]
     Active Substance: VALGANCICLOVIR
     Indication: ANTIVIRAL PROPHYLAXIS
     Route: 048
     Dates: start: 20070522, end: 20070530
  3. CELLCEPT [Concomitant]
     Active Substance: MYCOPHENOLATE MOFETIL\MYCOPHENOLATE MOFETIL HYDROCHLORIDE
     Route: 048
     Dates: start: 20070521, end: 20070530
  4. EXELON [Concomitant]
     Active Substance: RIVASTIGMINE TARTRATE
     Dosage: ON AN UNSPCIFIED DATE THE TDD WAS INCREASED TO 30MG
     Dates: start: 20070326
  5. ASPIRIN. [Concomitant]
     Active Substance: ASPIRIN
  6. LASIX [Suspect]
     Active Substance: FUROSEMIDE
     Indication: PRODUCT USED FOR UNKNOWN INDICATION
     Route: 065
     Dates: end: 20070629
  7. PROTONIX [Concomitant]
     Active Substance: PANTOPRAZOLE SODIUM
     Dosage: DAILY DOSE: START DATE- PRE TRANSPLANTATION.
  8. GENGRAF [Concomitant]
     Active Substance: CYCLOSPORINE
     Dates: start: 20070602
  9. PLACEBO [Concomitant]
     Active Substance: UNSPECIFIED INGREDIENT
     Indication: ANTIVIRAL PROPHYLAXIS
     Dosage: DOSE; 1 IN 1 DAY
     Route: 048
     Dates: end: 20070703
  10. INSULIN [Concomitant]
     Active Substance: INSULIN NOS
     Dosage: GIVEN AT VARIABLE DOSES, ON AN UNSPECIFIED DATE, THE TDD WAS ADMINISTERED AT58 UNITS. START DATE R+
  11. VALGANCICLOVIR [Concomitant]
     Active Substance: VALGANCICLOVIR
     Indication: ANTIVIRAL PROPHYLAXIS
     Route: 048
     Dates: start: 20070611, end: 20070703
  12. COLACE [Concomitant]
     Active Substance: DOCUSATE SODIUM
  13. TAMSULOSIN [Concomitant]
     Active Substance: TAMSULOSIN
     Dates: start: 20070307
  14. CIFRAN [Concomitant]
     Active Substance: CIPROFLOXACIN
     Dosage: START DATE REPORTED AS PRE TRANSPLANTATION.
  15. PROSCILLARIDIN [Concomitant]
     Dosage: STARTED PRIOR TO THE STUDY MEDICATION.
  16. FERROUS SULFATE [Concomitant]
     Active Substance: FERROUS SULFATE\FERROUS SULFATE, DRIED
     Dates: start: 20070423

REACTIONS (1)
  - Cytomegalovirus syndrome [Recovered/Resolved]

NARRATIVE: CASE EVENT DATE: 20070629
